FAERS Safety Report 6306692-4 (Version None)
Quarter: 2009Q3

REPORT INFORMATION
  Report Type: 
  Country: None (occurrence: None)
  Receive Date: 20090812
  Receipt Date: 20090806
  Transmission Date: 20100115
  Serious: Yes (Death)
  Sender: FDA-Public Use
  Company Number: GB-ELI_LILLY_AND_COMPANY-GB200905000872

PATIENT
  Sex: Male

DRUGS (7)
  1. ALIMTA [Suspect]
     Indication: MESOTHELIOMA
     Dosage: 500 MG/M2, UNKNOWN
     Route: 042
     Dates: start: 20080507
  2. CISPLATIN [Concomitant]
     Indication: MESOTHELIOMA
     Dosage: UNK, UNK
  3. FOLIC ACID [Concomitant]
     Indication: PROPHYLAXIS
     Dosage: 400 MG, UNKNOWN
     Route: 048
  4. VITAMIN B-12 [Concomitant]
     Indication: PROPHYLAXIS
  5. DEXAMETHASONE [Concomitant]
     Indication: ANTIEMETIC SUPPORTIVE CARE
     Dosage: 2 MG, UNKNOWN
     Route: 048
     Dates: start: 20080507
  6. LANSOPRAZOLE [Concomitant]
     Indication: PROPHYLAXIS
     Dosage: 30 MG, UNKNOWN
     Route: 048
  7. MST [Concomitant]
     Indication: ANALGESIA
     Dosage: 30 MG, UNKNOWN
     Route: 048

REACTIONS (3)
  - PNEUMONIA [None]
  - SEPSIS [None]
  - UNRESPONSIVE TO STIMULI [None]
